FAERS Safety Report 6639532-4 (Version None)
Quarter: 2010Q1

REPORT INFORMATION
  Report Type: 
  Country: None (occurrence: None)
  Receive Date: 20100318
  Receipt Date: 20100310
  Transmission Date: 20100710
  Serious: Yes (Other)
  Sender: FDA-Public Use
  Company Number: US-RB-004860-10

PATIENT
  Age: 76 Year
  Sex: Female

DRUGS (1)
  1. MUCINEX [Suspect]
     Dosage: TAKEN AS NEEDED FOR COPD
     Route: 048

REACTIONS (1)
  - BLOOD CALCIUM INCREASED [None]
